FAERS Safety Report 6434165-7 (Version None)
Quarter: 2009Q4

REPORT INFORMATION
  Report Type: 
  Country: None (occurrence: None)
  Receive Date: 20091110
  Receipt Date: 20081030
  Transmission Date: 20100525
  Serious: No
  Sender: FDA-Public Use
  Company Number: US-ASTRAZENECA-2009SE12262

PATIENT
  Age: 69 Year
  Sex: Male

DRUGS (2)
  1. PRILOSEC OTC [Suspect]
     Dosage: 1 TABLET, 1 /DAY FOR 4 DAYS
     Route: 048
     Dates: start: 20081025, end: 20081029
  2. FLOMAX [Concomitant]
     Dosage: UNKNOWN

REACTIONS (2)
  - DYSGEUSIA [None]
  - WRONG TECHNIQUE IN DRUG USAGE PROCESS [None]
